FAERS Safety Report 16744615 (Version 1)
Quarter: 2019Q3

REPORT INFORMATION
  Report Type: Spontaneous
  Country: CA (occurrence: CA)
  Receive Date: 20190827
  Receipt Date: 20190827
  Transmission Date: 20191005
  Serious: Yes (Other)
  Sender: FDA-Public Use
  Company Number: CA-PFIZER INC-2019362789

PATIENT
  Age: 71 Year
  Sex: Female

DRUGS (2)
  1. GEMCITABINE HYDROCHLORIDE. [Suspect]
     Active Substance: GEMCITABINE HYDROCHLORIDE
     Indication: PANCREATIC CARCINOMA
     Dosage: UNK, CYCLIC
  2. ABRAXANE [Concomitant]
     Active Substance: PACLITAXEL
     Dosage: UNK

REACTIONS (2)
  - Weight decreased [Unknown]
  - Haemoglobin decreased [Unknown]
